FAERS Safety Report 5477145-0 (Version None)
Quarter: 2007Q4

REPORT INFORMATION
  Report Type: 
  Country: None (occurrence: None)
  Receive Date: 20071004
  Receipt Date: 20071004
  Transmission Date: 20080405
  Serious: Yes (Other)
  Sender: FDA-Public Use
  Company Number: A0685796A

PATIENT
  Age: 37 Year
  Sex: Female

DRUGS (5)
  1. ALLI [Suspect]
     Route: 048
     Dates: end: 20071003
  2. KLONOPIN [Concomitant]
     Indication: DEPRESSION
  3. VYTORIN [Concomitant]
     Indication: BLOOD CHOLESTEROL INCREASED
  4. ANTI HYPERTENSIVE [Concomitant]
  5. ANXIOLYTICS(UNSPECIFIED) [Concomitant]
     Indication: ANXIETY

REACTIONS (2)
  - DIZZINESS [None]
  - RECTAL HAEMORRHAGE [None]
